FAERS Safety Report 5291868-8 (Version None)
Quarter: 2007Q2

REPORT INFORMATION
  Report Type: 
  Country: None (occurrence: None)
  Receive Date: 20070406
  Receipt Date: 20070406
  Transmission Date: 20071010
  Serious: Yes (Other)
  Sender: FDA-Public Use
  Company Number: None

PATIENT
  Age: 62 Year
  Sex: Male

DRUGS (14)
  1. WARFARIN SODIUM [Suspect]
     Indication: ATRIAL FIBRILLATION
     Dates: start: 20050101
  2. CEPHALEXIN [Suspect]
     Indication: CHILLS
  3. CEPHALEXIN [Suspect]
     Indication: PYREXIA
  4. GLIPIZIDE [Concomitant]
  5. FERRUS GLUC [Concomitant]
  6. ACETAMIN 500/HYDROCODONE 10 [Concomitant]
  7. METOPROLOL TAR [Concomitant]
  8. SIMVASTATIN [Concomitant]
  9. METFORMIN HCL [Concomitant]
  10. FUROSEMIDE [Concomitant]
  11. PROCHLORPERAZINE [Concomitant]
  12. IBUPROFEN [Concomitant]
  13. M.V.I. [Concomitant]
  14. CHEMO-AMIFOSTINE-CYCLES [Concomitant]

REACTIONS (5)
  - ECCHYMOSIS [None]
  - INTERNATIONAL NORMALISED RATIO INCREASED [None]
  - PURPURA [None]
  - SKIN HAEMORRHAGE [None]
  - SKIN ULCER [None]
